FAERS Safety Report 8190283-7 (Version None)
Quarter: 2012Q1

REPORT INFORMATION
  Report Type: 
  Country: None (occurrence: None)
  Receive Date: 20120307
  Receipt Date: 20120224
  Transmission Date: 20120608
  Serious: Yes (Other)
  Sender: FDA-Public Use
  Company Number: US-ELI_LILLY_AND_COMPANY-US201202007680

PATIENT
  Age: 76 Year
  Sex: Female

DRUGS (5)
  1. FOLIC ACID [Concomitant]
     Dosage: UNK, UNKNOWN
  2. ALIMTA [Suspect]
     Indication: LUNG NEOPLASM MALIGNANT
     Dosage: UNK, UNKNOWN
     Dates: start: 20120201
  3. VITAMIN B-12 [Concomitant]
     Dosage: UNK, UNKNOWN
  4. CORTICOSTEROIDS [Concomitant]
     Dosage: UNK, UNKNOWN
  5. CARBOPLATIN [Concomitant]
     Dosage: UNK, UNKNOWN

REACTIONS (1)
  - NECROSIS [None]
